FAERS Safety Report 7720251-8 (Version None)
Quarter: 2011Q3

REPORT INFORMATION
  Report Type: 
  Country: None (occurrence: None)
  Receive Date: 20110831
  Receipt Date: 20110825
  Transmission Date: 20111222
  Serious: Yes (Death)
  Sender: FDA-Public Use
  Company Number: US-CELGENEUS-163-21880-11063894

PATIENT
  Sex: Female

DRUGS (14)
  1. REVLIMID [Suspect]
     Indication: MULTIPLE MYELOMA
     Dosage: 15 MILLIGRAM
     Route: 048
     Dates: start: 20090501, end: 20100101
  2. SENNA [Concomitant]
     Route: 065
  3. PRILOSEC [Concomitant]
     Route: 065
  4. ATIVAN [Concomitant]
     Route: 065
  5. BIAXIN [Concomitant]
     Route: 065
  6. DEXAMETHASONE [Concomitant]
     Route: 065
  7. COLACE [Concomitant]
     Route: 065
  8. LASIX [Concomitant]
     Route: 065
  9. OXYCONTIN [Concomitant]
     Route: 065
  10. DILAUDID [Concomitant]
     Route: 065
  11. MIRALAX [Concomitant]
     Route: 065
  12. AMBIEN [Concomitant]
     Route: 065
  13. REVLIMID [Suspect]
     Dosage: 25 MILLIGRAM
     Route: 048
     Dates: start: 20101201, end: 20101201
  14. PROCHLORPERAZINE [Concomitant]
     Route: 065

REACTIONS (1)
  - PNEUMONIA [None]
